FAERS Safety Report 5778576-1 (Version None)
Quarter: 2008Q2

REPORT INFORMATION
  Report Type: 
  Country: None (occurrence: None)
  Receive Date: 20080619
  Receipt Date: 20080609
  Transmission Date: 20081010
  Serious: Yes (Other)
  Sender: FDA-Public Use
  Company Number: GB-AMGEN-UK282843

PATIENT
  Age: 31 Year
  Sex: Female

DRUGS (5)
  1. NEULASTA [Suspect]
     Indication: CHEMOTHERAPY
     Route: 058
  2. ETOPOSIDE [Concomitant]
     Route: 065
  3. METHYLPREDNISOLONE [Concomitant]
     Route: 065
  4. CYTARABINE [Concomitant]
     Route: 065
  5. CISPLATIN [Concomitant]
     Route: 065

REACTIONS (4)
  - ASCITES [None]
  - NEUTROPHIL COUNT INCREASED [None]
  - PLATELET COUNT INCREASED [None]
  - WHITE BLOOD CELL COUNT INCREASED [None]
